FAERS Safety Report 7311480-6 (Version None)
Quarter: 2011Q1

REPORT INFORMATION
  Report Type: 
  Country: None (occurrence: None)
  Receive Date: 20110224
  Receipt Date: 20110214
  Transmission Date: 20110831
  Serious: Yes (Other)
  Sender: FDA-Public Use
  Company Number: PHHY2009BR38781

PATIENT
  Sex: Female
  Weight: 59 kg

DRUGS (6)
  1. DIOVAN [Suspect]
     Dosage: 1 DF (160 MG) AT NIGHT
  2. DIOVAN HCT [Suspect]
     Indication: HYPERTENSION
     Dosage: 1 DF (80/12.5 MG) IN THE MORNING
     Route: 048
  3. DIOVAN HCT [Suspect]
     Dosage: 1 DF (160/12.5 MG), IN MORNING
     Route: 048
  4. PROPRANOLOL [Concomitant]
     Dosage: 1 DF (40MG) EVERY EIGHT HOURS
  5. PROPRANOLOL [Concomitant]
     Dosage: ONE TABLET EVERY EIGHT HOURS AND HALF TABLET AT 17 HOURS
  6. DIOVAN [Suspect]
     Indication: HYPERTENSION
     Dosage: ONE TABLET (80 MG) DAILY
     Route: 048
     Dates: start: 20010101

REACTIONS (6)
  - DECREASED ACTIVITY [None]
  - FEMUR FRACTURE [None]
  - BLOOD PRESSURE INCREASED [None]
  - NERVOUSNESS [None]
  - MALAISE [None]
  - FALL [None]
